FAERS Safety Report 4911758-7 (Version None)
Quarter: 2006Q1

REPORT INFORMATION
  Report Type: 
  Country: None (occurrence: None)
  Receive Date: 20060215
  Receipt Date: 20060207
  Transmission Date: 20060701
  Serious: Yes (Hospitalization)
  Sender: FDA-Public Use
  Company Number: PHNU2006DE00860

PATIENT
  Age: 80 Year
  Sex: Male

DRUGS (8)
  1. LAMISIL [Suspect]
     Indication: SYSTEMIC MYCOSIS
     Dosage: 250 MG, QD
     Route: 048
  2. ACETYLSALICYLIC ACID SRT [Concomitant]
  3. XIPAMIDE [Concomitant]
  4. FUROSEMIDE [Concomitant]
     Dosage: 40 MG, BID
  5. ATORVASTATIN CALCIUM [Concomitant]
  6. PANTOZOL [Concomitant]
  7. ALLOPURINOL [Concomitant]
  8. INSULIN [Concomitant]

REACTIONS (4)
  - HYPERKINESIA [None]
  - MOVEMENT DISORDER [None]
  - MYOCLONUS [None]
  - TREMOR [None]
